FAERS Safety Report 11758663 (Version 8)
Quarter: 2017Q2

REPORT INFORMATION
  Report Type: Report from Study
  Country: US (occurrence: US)
  Receive Date: 20151120
  Receipt Date: 20170622
  Transmission Date: 20170829
  Serious: Yes (Other)
  Sender: FDA-Public Use
  Company Number: US-SA-2015SA163733

PATIENT
  Age: 47 Year
  Sex: Male

DRUGS (2)
  1. LEMTRADA [Suspect]
     Active Substance: ALEMTUZUMAB
     Indication: PROGRESSIVE MULTIPLE SCLEROSIS
     Route: 041
     Dates: start: 20160727, end: 20160729
  2. LEMTRADA [Suspect]
     Active Substance: ALEMTUZUMAB
     Indication: PROGRESSIVE MULTIPLE SCLEROSIS
     Route: 041
     Dates: start: 20150803, end: 20150807

REACTIONS (24)
  - Head discomfort [Unknown]
  - Joint range of motion decreased [Recovering/Resolving]
  - Alopecia [Unknown]
  - Speech disorder [Unknown]
  - Aphasia [Not Recovered/Not Resolved]
  - Off label use [Unknown]
  - Asthenia [Not Recovered/Not Resolved]
  - Genital hypoaesthesia [Not Recovered/Not Resolved]
  - Gait disturbance [Not Recovered/Not Resolved]
  - Constipation [Not Recovered/Not Resolved]
  - Peripheral swelling [Not Recovered/Not Resolved]
  - Headache [Unknown]
  - Fatigue [Not Recovered/Not Resolved]
  - Dysuria [Unknown]
  - Erectile dysfunction [Unknown]
  - Muscular weakness [Not Recovered/Not Resolved]
  - Muscle tightness [Not Recovered/Not Resolved]
  - Muscle spasms [Not Recovered/Not Resolved]
  - Joint swelling [Not Recovered/Not Resolved]
  - Condition aggravated [Not Recovered/Not Resolved]
  - Hypertrichosis [Not Recovered/Not Resolved]
  - Dysarthria [Not Recovered/Not Resolved]
  - Mental impairment [Not Recovered/Not Resolved]
  - Speech disorder [Not Recovered/Not Resolved]

NARRATIVE: CASE EVENT DATE: 2015
